FAERS Safety Report 24620562 (Version 1)
Quarter: 2024Q4

REPORT INFORMATION
  Report Type: Spontaneous
  Country: US (occurrence: US)
  Receive Date: 20241114
  Receipt Date: 20241114
  Transmission Date: 20250115
  Serious: No
  Sender: MISSION PHARMACAL COMPANY
  Company Number: US-Mission Pharmacal Company-2165047

PATIENT
  Age: 19 Year
  Sex: Male

DRUGS (2)
  1. THIOLA EC [Suspect]
     Active Substance: TIOPRONIN
     Indication: Cystinuria
     Dates: start: 20200809
  2. THIOLA EC [Suspect]
     Active Substance: TIOPRONIN
     Dates: start: 20200325

REACTIONS (1)
  - Dyspepsia [Unknown]
